FAERS Safety Report 5786274-3 (Version None)
Quarter: 2008Q2

REPORT INFORMATION
  Report Type: 
  Country: None (occurrence: None)
  Receive Date: 20080618
  Receipt Date: 20080612
  Transmission Date: 20081010
  Serious: Yes (Other)
  Sender: FDA-Public Use
  Company Number: 056-C5013-08060799

PATIENT
  Age: 79 Year
  Sex: Female

DRUGS (2)
  1. CC-5013 \PLACEBO (LENALIDOMIDE) (CAPSULES) [Suspect]
     Indication: 5Q-SYNDROME
     Dosage: 1 IN 1 D, ORAL
     Route: 048
     Dates: start: 20060510, end: 20070510
  2. CC-5013 (LENALIDOMIDE) (CAPSULES) [Suspect]
     Indication: 5Q-SYNDROME
     Dosage: 5 MG, 2 IN 1 WK, ORAL
     Route: 048
     Dates: start: 20070511

REACTIONS (1)
  - BREAST CANCER STAGE I [None]
